FAERS Safety Report 13975085 (Version 2)
Quarter: 2017Q3

REPORT INFORMATION
  Report Type: Spontaneous
  Country: IT (occurrence: IT)
  Receive Date: 20170915
  Receipt Date: 20170921
  Transmission Date: 20171128
  Serious: Yes (Hospitalization)
  Sender: FDA-Public Use
  Company Number: IT-TEVA-805214ACC

PATIENT
  Age: 70 Year
  Sex: Female

DRUGS (9)
  1. PARACETAMOL + CODEINE PHOSPHATE [Interacting]
     Active Substance: ACETAMINOPHEN\CODEINE PHOSPHATE
     Indication: MIGRAINE
     Dosage: 30MG CODINE; 500MG PARACETMOL
     Route: 065
     Dates: start: 20151121
  2. DIAZEPAM. [Concomitant]
     Active Substance: DIAZEPAM
     Indication: PRODUCT USED FOR UNKNOWN INDICATION
     Dosage: 15 MILLIGRAM DAILY;
     Route: 048
  3. PROPRANOLOL [Concomitant]
     Active Substance: PROPRANOLOL HYDROCHLORIDE
     Indication: PSYCHOTHERAPY
     Route: 065
  4. RIZATRIPTAN. [Interacting]
     Active Substance: RIZATRIPTAN
     Indication: PRODUCT USED FOR UNKNOWN INDICATION
     Dosage: 10MG AS NEEDED
  5. VALPROATE [Concomitant]
     Active Substance: VALPROIC ACID
     Indication: PSYCHOTHERAPY
     Route: 065
  6. INDOMETACIN [Concomitant]
     Active Substance: INDOMETHACIN
     Dosage: AS NEEDED
     Route: 065
  7. VENLAFAXINE [Suspect]
     Active Substance: VENLAFAXINE HYDROCHLORIDE
     Indication: MAJOR DEPRESSION
     Dosage: 225 MILLIGRAM DAILY; 225MG/DAY(150MG IN THE MORNING AND 75MG IN THE AFTERNOON)
     Dates: end: 2015
  8. TOPIRAMATE. [Concomitant]
     Active Substance: TOPIRAMATE
     Indication: PSYCHOTHERAPY
     Route: 065
  9. AMITRIPTYLINE [Concomitant]
     Active Substance: AMITRIPTYLINE
     Indication: PSYCHOTHERAPY
     Route: 065

REACTIONS (2)
  - Serotonin syndrome [Recovered/Resolved]
  - Drug interaction [Recovered/Resolved]
